FAERS Safety Report 21631908 (Version 1)
Quarter: 2022Q4

REPORT INFORMATION
  Report Type: Spontaneous
  Country: PT (occurrence: PT)
  Receive Date: 20221123
  Receipt Date: 20221123
  Transmission Date: 20230113
  Serious: Yes (Hospitalization, Other)
  Sender: FDA-Public Use
  Company Number: PT-Zentiva-2022-ZT-011210

PATIENT
  Age: 78 Year
  Sex: Male

DRUGS (3)
  1. ALLOPURINOL [Suspect]
     Active Substance: ALLOPURINOL
     Indication: Product used for unknown indication
     Dosage: UNK
     Route: 065
  2. LEVETIRACETAM [Suspect]
     Active Substance: LEVETIRACETAM
     Indication: Product used for unknown indication
     Dosage: UNK
     Route: 065
  3. PHENYTOIN [Concomitant]
     Active Substance: PHENYTOIN
     Indication: Product used for unknown indication
     Dosage: UNK
     Route: 065

REACTIONS (10)
  - Mucosal inflammation [Recovered/Resolved]
  - Lymphopenia [Recovered/Resolved]
  - Odynophagia [Recovered/Resolved]
  - Oropharyngeal candidiasis [Recovered/Resolved]
  - Conjunctival hyperaemia [Recovered/Resolved]
  - Pyrexia [Recovered/Resolved]
  - Productive cough [Recovered/Resolved]
  - Ulcerative keratitis [Recovered/Resolved with Sequelae]
  - Stevens-Johnson syndrome [Recovered/Resolved]
  - Skin lesion [Recovered/Resolved]
